FAERS Safety Report 4361086-6 (Version None)
Quarter: 2004Q2

REPORT INFORMATION
  Report Type: 
  Country: None (occurrence: None)
  Receive Date: 20040520
  Receipt Date: 20040323
  Transmission Date: 20050107
  Serious: Yes (Other)
  Sender: FDA-Public Use
  Company Number: FR-ROCHE-362590

PATIENT
  Age: 62 Year
  Sex: Male
  Weight: 52 kg

DRUGS (4)
  1. PEGASYS [Suspect]
     Indication: HEPATITIS C
     Route: 058
     Dates: start: 20040105
  2. COPEGUS [Concomitant]
     Indication: HEPATITIS C
     Route: 065
  3. AMLODIPINE [Concomitant]
     Indication: HYPERTENSION
     Route: 065
  4. PROGRAF [Concomitant]
     Indication: PROPHYLAXIS AGAINST TRANSPLANT REJECTION
     Route: 048

REACTIONS (2)
  - CONJUNCTIVITIS [None]
  - MACULAR DEGENERATION [None]
